FAERS Safety Report 25229579 (Version 1)
Quarter: 2025Q2

REPORT INFORMATION
  Report Type: Report from Study
  Country: GB (occurrence: GB)
  Receive Date: 20250423
  Receipt Date: 20250423
  Transmission Date: 20250717
  Serious: Yes (Other)
  Sender: ALEXION PHARMACEUTICALS
  Company Number: GB-AstraZeneca-CH-00850804A

PATIENT

DRUGS (2)
  1. TEZEPELUMAB [Suspect]
     Active Substance: TEZEPELUMAB
     Indication: Asthma
  2. TEZEPELUMAB [Suspect]
     Active Substance: TEZEPELUMAB

REACTIONS (6)
  - Chest discomfort [Unknown]
  - Rash pruritic [Unknown]
  - Hypoaesthesia [Unknown]
  - Malaise [Unknown]
  - Palpitations [Unknown]
  - Lower respiratory tract infection [Unknown]
